FAERS Safety Report 13517346 (Version 1)
Quarter: 2017Q2

REPORT INFORMATION
  Report Type: Report from Study
  Country: US (occurrence: US)
  Receive Date: 20170505
  Receipt Date: 20170505
  Transmission Date: 20170830
  Serious: Yes (Other)
  Sender: FDA-Public Use
  Company Number: US-PFIZER INC-2017190968

PATIENT
  Age: 66 Year
  Sex: Female

DRUGS (1)
  1. IBRANCE [Suspect]
     Active Substance: PALBOCICLIB
     Indication: BREAST CANCER
     Dosage: 125 MG, DAILY
     Route: 048
     Dates: start: 201512

REACTIONS (7)
  - Impaired healing [Unknown]
  - Arthralgia [Unknown]
  - Bone marrow failure [Unknown]
  - Dry skin [Unknown]
  - Drug dose omission [Unknown]
  - Fatigue [Unknown]
  - Pain [Unknown]
